FAERS Safety Report 4893176-3 (Version None)
Quarter: 2005Q4

REPORT INFORMATION
  Report Type: 
  Country: None (occurrence: None)
  Receive Date: 20051223
  Receipt Date: 20050907
  Transmission Date: 20060501
  Serious: No
  Sender: FDA-Public Use
  Company Number: 2005PV001888

PATIENT
  Age: 56 Year
  Sex: Male
  Weight: 158.759 kg

DRUGS (3)
  1. SYMLIN [Suspect]
     Indication: DIABETES MELLITUS NON-INSULIN-DEPENDENT
     Dosage: 30 MCG;TID;SC
     Route: 058
     Dates: start: 20050825, end: 20050829
  2. HYZAAR [Concomitant]
  3. METFORMIN [Concomitant]

REACTIONS (1)
  - DYSPHONIA [None]
